FAERS Safety Report 6979633-4 (Version None)
Quarter: 2010Q3

REPORT INFORMATION
  Report Type: 
  Country: None (occurrence: None)
  Receive Date: 20100910
  Receipt Date: 20100910
  Transmission Date: 20110219
  Serious: Yes (Life-Threatening)
  Sender: FDA-Public Use
  Company Number: None

PATIENT
  Age: 27 Year
  Sex: Female
  Weight: 57 kg

DRUGS (3)
  1. OCELLA -ETHINYL ESTRADIOL/DROSP- 0.03MG/3MG UNKNOWN [Suspect]
     Indication: ORAL CONTRACEPTION
     Dosage: 0.03MG/3MG DAILY PO
     Route: 048
  2. DOXYCYCLINE [Concomitant]
  3. CLINDAMYCIN PHOSPHATE [Concomitant]

REACTIONS (2)
  - PULMONARY ARTERY THROMBOSIS [None]
  - PULMONARY EMBOLISM [None]
